FAERS Safety Report 4505869-8 (Version None)
Quarter: 2004Q4

REPORT INFORMATION
  Report Type: 
  Country: None (occurrence: None)
  Receive Date: 20041119
  Receipt Date: 20041101
  Transmission Date: 20050328
  Serious: Yes (Death, Life-Threatening, Disabling, Other)
  Sender: FDA-Public Use
  Company Number: GB-NOVOPROD-240218

PATIENT
  Age: 55 Year
  Sex: Male
  Weight: 115 kg

DRUGS (17)
  1. NOVOSEVEN [Suspect]
     Indication: POST PROCEDURAL HAEMORRHAGE
     Dosage: 7.5 ML, QD
     Route: 042
     Dates: start: 20041029, end: 20041029
  2. ATENOLOL [Concomitant]
     Dosage: 25 MG, QD
     Route: 048
     Dates: start: 20041030, end: 20041103
  3. ACETAMINOPHEN [Concomitant]
     Dosage: 4 G, QD
     Route: 048
     Dates: start: 20041030, end: 20041103
  4. FRUSEMIDE [Concomitant]
     Dosage: 40 MG, QD
     Route: 048
     Dates: start: 20041030, end: 20041103
  5. AMILORIDE [Concomitant]
     Dosage: 5 MG, QD
     Route: 048
     Dates: start: 20041030, end: 20041103
  6. ASPIRIN [Concomitant]
     Dosage: 75 MG, QD
     Route: 048
     Dates: start: 20041031, end: 20041103
  7. SIMVASTATIN [Concomitant]
     Dosage: 40 MG, UNK
     Route: 048
     Dates: start: 20041030, end: 20041102
  8. RAMIPRIL [Concomitant]
     Dosage: 10 MG, QD
     Route: 048
     Dates: start: 20041030, end: 20041102
  9. SENNA [Concomitant]
     Dosage: 15 MG, QD
     Route: 048
     Dates: start: 20041101, end: 20041102
  10. CLEXANE [Concomitant]
     Dosage: 240 MG, QD
     Route: 058
     Dates: start: 20041031, end: 20041103
  11. DICLOFENAC [Concomitant]
     Dosage: 75 G, QD
     Route: 054
     Dates: start: 20041103, end: 20041103
  12. LANSOPRAZOLE [Concomitant]
     Dosage: 30 MG, QD
     Route: 048
     Dates: start: 20041103, end: 20041103
  13. TRAMADOL [Concomitant]
     Dosage: 200 MG, QD
     Route: 048
     Dates: start: 20041102, end: 20041103
  14. METOCLOPRAMIDE [Concomitant]
     Dosage: 20 MG, QD
     Route: 042
     Dates: start: 20041103, end: 20041103
  15. ONDANSETRON [Concomitant]
     Dosage: 4 MG, QD
     Route: 042
     Dates: start: 20041103, end: 20041103
  16. CYCLIZINE [Concomitant]
     Dosage: 50 MG, QD
     Route: 042
     Dates: start: 20041103, end: 20041104
  17. RANITIDINE [Concomitant]
     Dosage: 50 MG, QD
     Route: 042
     Dates: start: 20041103, end: 20041104

REACTIONS (26)
  - ABDOMINAL DISCOMFORT [None]
  - ACIDOSIS [None]
  - ATRIAL FIBRILLATION [None]
  - BLOOD LACTIC ACID INCREASED [None]
  - BRADYCARDIA [None]
  - CARDIAC ARREST [None]
  - CARDIAC OUTPUT DECREASED [None]
  - CARDIAC TAMPONADE [None]
  - CARDIOVASCULAR DISORDER [None]
  - CEREBRAL INFARCTION [None]
  - DISORIENTATION [None]
  - DYSPHAGIA [None]
  - DYSPNOEA [None]
  - GASTRIC ULCER HAEMORRHAGE [None]
  - HAEMODIALYSIS [None]
  - HEART RATE INCREASED [None]
  - HYPERKALAEMIA [None]
  - HYPOTENSION [None]
  - MULTI-ORGAN FAILURE [None]
  - PLEURAL EFFUSION [None]
  - POST PROCEDURAL HAEMATOMA [None]
  - POST PROCEDURAL PAIN [None]
  - PULSE ABSENT [None]
  - SOMNOLENCE [None]
  - VENTRICULAR TACHYCARDIA [None]
  - VOMITING [None]
